FAERS Safety Report 17006901 (Version 2)
Quarter: 2019Q4

REPORT INFORMATION
  Report Type: Report from Study
  Country: JP (occurrence: JP)
  Receive Date: 20191107
  Receipt Date: 20191129
  Transmission Date: 20200122
  Serious: Yes (Death, Hospitalization, Other)
  Sender: FDA-Public Use
  Company Number: JP-TAKEDA-2018MPI016077

PATIENT
  Age: 67 Year
  Sex: Male
  Weight: 59.1 kg

DRUGS (9)
  1. FILGRASTIM [Concomitant]
     Active Substance: FILGRASTIM
     Indication: WHITE BLOOD CELL COUNT DECREASED
     Dosage: 75 MILLIGRAM, QD
     Route: 065
     Dates: start: 20180123, end: 20180125
  2. OLIVES [Concomitant]
     Active Substance: LIDOCAINE HYDROCHLORIDE
     Indication: VENTRICULAR TACHYCARDIA
     Dosage: UNK
     Route: 065
     Dates: start: 20180820, end: 20180824
  3. AMIODARONE HYDROCHLORIDE. [Concomitant]
     Active Substance: AMIODARONE HYDROCHLORIDE
     Indication: VENTRICULAR TACHYCARDIA
     Dosage: 400 MILLIGRAM, QD
     Route: 065
     Dates: start: 20180824, end: 20180825
  4. DARZALEX [Suspect]
     Active Substance: DARATUMUMAB
     Indication: PLASMA CELL MYELOMA
     Dosage: 16 MILLIGRAM/KILOGRAM, QD
     Route: 041
     Dates: start: 20171206, end: 20180807
  5. BORTEZOMIB. [Suspect]
     Active Substance: BORTEZOMIB
     Indication: PLASMA CELL MYELOMA
     Dosage: 1.3 MILLIGRAM/SQ. METER, QD
     Route: 058
     Dates: start: 20180522, end: 20180807
  6. LENALIDOMIDE [Concomitant]
     Active Substance: LENALIDOMIDE
     Indication: PLASMA CELL MYELOMA
     Dosage: 25 MILLIGRAM, QD
     Route: 048
     Dates: start: 20171206, end: 20180214
  7. DEXAMETHASONE. [Concomitant]
     Active Substance: DEXAMETHASONE
     Indication: PLASMA CELL MYELOMA
     Dosage: 20 MILLIGRAM, QD
     Route: 065
     Dates: start: 20171206, end: 20180808
  8. ANCARON [Concomitant]
     Active Substance: AMIODARONE HYDROCHLORIDE
     Indication: VENTRICULAR TACHYCARDIA
     Dosage: UNK
     Route: 065
     Dates: start: 20180820, end: 20180824
  9. PLATELET CONCENTRATE(IRRADIATED) [Concomitant]
     Indication: PLATELET COUNT DECREASED
     Dosage: 10 INTERNATIONAL UNIT
     Route: 065
     Dates: start: 20180417, end: 20180425

REACTIONS (6)
  - Ventricular tachycardia [Recovered/Resolved]
  - White blood cell count decreased [Recovered/Resolved]
  - Plasma cell myeloma [Fatal]
  - Platelet count decreased [Recovering/Resolving]
  - Oropharyngeal discomfort [Recovered/Resolved]
  - Infusion related reaction [Recovered/Resolved]

NARRATIVE: CASE EVENT DATE: 20171206
